FAERS Safety Report 7805473-X (Version None)
Quarter: 2011Q4

REPORT INFORMATION
  Report Type: 
  Country: None (occurrence: None)
  Receive Date: 20111010
  Receipt Date: 20110928
  Transmission Date: 20120403
  Serious: Yes (Other)
  Sender: FDA-Public Use
  Company Number: PHEH2011US05924

PATIENT
  Sex: Female

DRUGS (2)
  1. AREDIA [Suspect]
     Indication: BONE LOSS
     Dosage: 90 MG, UNK
     Route: 042
  2. AREDIA [Suspect]
     Indication: OSTEOPOROSIS

REACTIONS (8)
  - METASTASES TO LYMPH NODES [None]
  - NECK PAIN [None]
  - BREAST MASS [None]
  - METASTASES TO BONE [None]
  - BREAST CANCER FEMALE [None]
  - BONE LESION [None]
  - OROPHARYNGEAL PAIN [None]
  - BACK PAIN [None]
